FAERS Safety Report 10379903 (Version 7)
Quarter: 2016Q1

REPORT INFORMATION
  Report Type: Report from Study
  Country: US (occurrence: US)
  Receive Date: 20140813
  Receipt Date: 20160210
  Transmission Date: 20160525
  Serious: Yes (Hospitalization, Other)
  Sender: FDA-Public Use
  Company Number: US-GILEAD-2014-0110881

PATIENT
  Age: 24 Year
  Sex: Female
  Weight: 122.9 kg

DRUGS (20)
  1. REGLAN [Concomitant]
     Active Substance: METOCLOPRAMIDE HYDROCHLORIDE
  2. RISPERDAL [Concomitant]
     Active Substance: RISPERIDONE
  3. NYSTATIN. [Concomitant]
     Active Substance: NYSTATIN
  4. PROCHLORPERAZINE. [Concomitant]
     Active Substance: PROCHLORPERAZINE
  5. SIMETHICONE (DIMETHICONE) [Concomitant]
     Active Substance: DIMETHICONE
  6. SUCRALFATE. [Concomitant]
     Active Substance: SUCRALFATE
  7. AMBRISENTAN [Suspect]
     Active Substance: AMBRISENTAN
     Indication: SYSTEMIC LUPUS ERYTHEMATOSUS
  8. REMODULIN [Suspect]
     Active Substance: TREPROSTINIL
     Indication: PRODUCT USED FOR UNKNOWN INDICATION
     Route: 065
  9. FOLIC ACID. [Concomitant]
     Active Substance: FOLIC ACID
  10. METOPROLOL. [Concomitant]
     Active Substance: METOPROLOL
  11. CHLORPROMAZINE. [Concomitant]
     Active Substance: CHLORPROMAZINE
  12. AMBRISENTAN [Suspect]
     Active Substance: AMBRISENTAN
     Indication: PULMONARY HYPERTENSION
     Dosage: 5 MG, QD
     Route: 065
     Dates: start: 20140523
  13. LASIX [Concomitant]
     Active Substance: FUROSEMIDE
  14. PREDNISONE. [Concomitant]
     Active Substance: PREDNISONE
  15. ERYTHROMYCIN. [Concomitant]
     Active Substance: ERYTHROMYCIN
  16. PLAQUENIL [Concomitant]
     Active Substance: HYDROXYCHLOROQUINE SULFATE
  17. XANAX [Concomitant]
     Active Substance: ALPRAZOLAM
  18. POTASSIUM CHLORIDE. [Concomitant]
     Active Substance: POTASSIUM CHLORIDE
  19. AMBRISENTAN [Suspect]
     Active Substance: AMBRISENTAN
     Indication: CONNECTIVE TISSUE DISORDER
  20. PROTONIX [Concomitant]
     Active Substance: PANTOPRAZOLE SODIUM

REACTIONS (40)
  - Systemic lupus erythematosus [Unknown]
  - Pancreatitis acute [Unknown]
  - Application site pruritus [Unknown]
  - Injection site pruritus [Unknown]
  - Secretion discharge [Unknown]
  - Impaired healing [Unknown]
  - Swelling [Not Recovered/Not Resolved]
  - Dizziness [Unknown]
  - Blood folate decreased [Unknown]
  - Malaise [Unknown]
  - Injection site pain [Not Recovered/Not Resolved]
  - Haemorrhage [Unknown]
  - Pancytopenia [Unknown]
  - Injection site discharge [Unknown]
  - Pyrexia [Unknown]
  - Pain [Unknown]
  - Biopsy bone marrow [Unknown]
  - Nausea [Unknown]
  - Hypotension [Unknown]
  - Dehydration [Unknown]
  - Diarrhoea [Unknown]
  - Acute kidney injury [Unknown]
  - Urinary tract infection [Unknown]
  - Unevaluable event [Unknown]
  - Thrombocytopenia [Unknown]
  - Gastroenteritis [Unknown]
  - Abdominal pain [Unknown]
  - Contusion [Unknown]
  - Trichomoniasis [Unknown]
  - Infusion site warmth [Unknown]
  - Tachycardia [Unknown]
  - Rash [Unknown]
  - Localised infection [Unknown]
  - Acute prerenal failure [Unknown]
  - Oedema [Unknown]
  - Vomiting [Unknown]
  - Injection site erythema [Not Recovered/Not Resolved]
  - Local swelling [Unknown]
  - Retroperitoneal lymphadenopathy [Unknown]
  - Hypokalaemia [Unknown]
